FAERS Safety Report 7727445-6 (Version None)
Quarter: 2011Q3

REPORT INFORMATION
  Report Type: 
  Country: None (occurrence: None)
  Receive Date: 20110902
  Receipt Date: 20110823
  Transmission Date: 20111222
  Serious: No
  Sender: FDA-Public Use
  Company Number: US-BAYER-2011-077578

PATIENT
  Age: 60 Year
  Sex: Female
  Weight: 100 kg

DRUGS (12)
  1. DEXEDRINE [Concomitant]
     Dosage: UNK
     Dates: start: 20080209
  2. TEGRETOL [Concomitant]
     Dosage: UNK
     Dates: start: 20100513
  3. INTERFERON BETA-1B [Suspect]
     Indication: MULTIPLE SCLEROSIS
  4. OXYGEN [Concomitant]
  5. TRAZODONE HCL [Concomitant]
  6. AMBIEN [Concomitant]
     Dosage: UNK
     Dates: start: 20100128
  7. HYDROCODONE BITARTRATE [Concomitant]
     Dosage: UNK
     Dates: end: 20080209
  8. LASIX [Concomitant]
     Dosage: UNK
     Dates: start: 20051130
  9. NUVIGIL [Concomitant]
     Dosage: UNK
     Dates: start: 20090311
  10. LANTUS [Concomitant]
     Dosage: UNK
     Dates: start: 20061130
  11. GLATIRAMER ACETATE [Concomitant]
     Dosage: UNK
     Dates: end: 19930825
  12. DULOXETIME HYDROCHLORIDE [Concomitant]
     Dosage: UNK
     Dates: start: 20090301

REACTIONS (1)
  - DEPRESSED MOOD [None]
